FAERS Safety Report 10217731 (Version 2)
Quarter: 2014Q3

REPORT INFORMATION
  Report Type: Spontaneous
  Country: US (occurrence: US)
  Receive Date: 20140604
  Receipt Date: 20140707
  Transmission Date: 20150326
  Serious: No
  Sender: FDA-Public Use
  Company Number: US-GILEAD-2014-0104090

PATIENT
  Sex: Female

DRUGS (2)
  1. REVATIO [Concomitant]
     Active Substance: SILDENAFIL CITRATE
  2. LETAIRIS [Suspect]
     Active Substance: AMBRISENTAN
     Indication: PRODUCT USED FOR UNKNOWN INDICATION
     Dosage: 5 MG, QD
     Route: 065
     Dates: start: 20140403, end: 20140619

REACTIONS (7)
  - Dizziness [Unknown]
  - Fatigue [Unknown]
  - Unevaluable event [Unknown]
  - Dyspnoea [Unknown]
  - Rash [Unknown]
  - Diarrhoea [Unknown]
  - Headache [Unknown]
